FAERS Safety Report 21493891 (Version 2)
Quarter: 2022Q4

REPORT INFORMATION
  Report Type: Report from Study
  Country: US (occurrence: US)
  Receive Date: 20221021
  Receipt Date: 20221216
  Transmission Date: 20230112
  Serious: Yes (Death)
  Sender: FDA-Public Use
  Company Number: US-JNJFOC-20221033899

PATIENT
  Age: 40 Year
  Sex: Female

DRUGS (30)
  1. SPRAVATO [Suspect]
     Active Substance: ESKETAMINE
     Indication: Depression
     Dosage: 56 MG, 1 TOTAL DOSES
     Dates: start: 20220218, end: 20220218
  2. SPRAVATO [Suspect]
     Active Substance: ESKETAMINE
     Dosage: 84 MG, 33 TOTAL DOSES
     Dates: start: 20220223, end: 20220916
  3. PRAZOSIN [Concomitant]
     Active Substance: PRAZOSIN
  4. LINZESS [Concomitant]
     Active Substance: LINACLOTIDE
  5. TOPAMAX [Concomitant]
     Active Substance: TOPIRAMATE
  6. MELOXICAM [Concomitant]
     Active Substance: MELOXICAM
  7. SUMATRIPTAN [Concomitant]
     Active Substance: SUMATRIPTAN
  8. TRAMADOL [Concomitant]
     Active Substance: TRAMADOL
  9. MIDODRINE [Concomitant]
     Active Substance: MIDODRINE
  10. ZOFRAN [Concomitant]
     Active Substance: ONDANSETRON HYDROCHLORIDE
  11. LYRICA [Concomitant]
     Active Substance: PREGABALIN
  12. AMITIZA [Concomitant]
     Active Substance: LUBIPROSTONE
  13. LIRAGLUTIDE [Concomitant]
     Active Substance: LIRAGLUTIDE
  14. EMGALITY [Concomitant]
     Active Substance: GALCANEZUMAB-GNLM
  15. CEFDINIR [Concomitant]
     Active Substance: CEFDINIR
  16. COLACE [Concomitant]
     Active Substance: DOCUSATE SODIUM
  17. PRISTIQ EXTENDED-RELEASE [Concomitant]
     Active Substance: DESVENLAFAXINE SUCCINATE
  18. ATARAX [Concomitant]
     Active Substance: HYDROXYZINE HYDROCHLORIDE
  19. VYVANSE [Concomitant]
     Active Substance: LISDEXAMFETAMINE DIMESYLATE
  20. SINGULAIR [Concomitant]
     Active Substance: MONTELUKAST SODIUM
  21. SEROQUEL [Concomitant]
     Active Substance: QUETIAPINE FUMARATE
  22. FLONASE [Concomitant]
     Active Substance: FLUTICASONE PROPIONATE
  23. HYDROXYCHLOROQUINE DIPHOSPHATE [Concomitant]
     Active Substance: HYDROXYCHLOROQUINE DIPHOSPHATE
  24. PROTONIX [Concomitant]
     Active Substance: PANTOPRAZOLE SODIUM
  25. IMITREX [Concomitant]
     Active Substance: SUMATRIPTAN SUCCINATE
  26. TRAZODONE [Concomitant]
     Active Substance: TRAZODONE HYDROCHLORIDE
  27. PROPRANOLOL HYDROCHLORIDE [Concomitant]
     Active Substance: PROPRANOLOL HYDROCHLORIDE
  28. VITAMIN D3 [Concomitant]
     Active Substance: CHOLECALCIFEROL
  29. MIRALAX [Concomitant]
     Active Substance: POLYETHYLENE GLYCOL 3350
  30. IRON [Concomitant]
     Active Substance: IRON

REACTIONS (3)
  - Sepsis [Fatal]
  - COVID-19 [Fatal]
  - Cardiac disorder [Fatal]

NARRATIVE: CASE EVENT DATE: 20220101
